FAERS Safety Report 7946362-X (Version None)
Quarter: 2011Q4

REPORT INFORMATION
  Report Type: 
  Country: None (occurrence: None)
  Receive Date: 20111129
  Receipt Date: 20111122
  Transmission Date: 20120403
  Serious: Yes (Hospitalization)
  Sender: FDA-Public Use
  Company Number: US-MERCK-1110USA03858

PATIENT
  Age: 68 Year
  Sex: Female

DRUGS (14)
  1. PLAVIX [Concomitant]
     Route: 065
  2. FOSAMAX [Concomitant]
     Route: 048
  3. ZOLOFT [Concomitant]
     Route: 065
  4. VYTORIN [Concomitant]
     Route: 048
  5. IMDUR [Concomitant]
     Route: 065
  6. PROPECIA [Suspect]
     Indication: ALOPECIA
     Route: 048
     Dates: start: 19950101
  7. PROTONIX [Concomitant]
     Route: 065
  8. OS-CAL + D [Concomitant]
     Route: 065
  9. LASIX [Concomitant]
     Route: 065
  10. NITROSTAT [Concomitant]
     Route: 065
  11. ALLOPURINOL [Concomitant]
     Route: 065
  12. POTASSIUM CHLORIDE [Concomitant]
     Route: 065
  13. LIBRAX [Concomitant]
     Route: 065
  14. RESTORIL [Concomitant]
     Route: 065

REACTIONS (5)
  - VOMITING PROJECTILE [None]
  - HAEMATEMESIS [None]
  - BRONCHITIS [None]
  - ULCER HAEMORRHAGE [None]
  - DRUG ADMINISTRATION ERROR [None]
